FAERS Safety Report 24047892 (Version 1)
Quarter: 2024Q3

REPORT INFORMATION
  Report Type: Spontaneous
  Country: CN (occurrence: CN)
  Receive Date: 20240703
  Receipt Date: 20240703
  Transmission Date: 20241017
  Serious: Yes (Other)
  Sender: WOODWARD PHARMA SERVICES
  Company Number: CN-WOODWARD-2024-CN-000234

PATIENT
  Age: 86 Year
  Sex: Male

DRUGS (3)
  1. RABEPRAZOLE SODIUM [Suspect]
     Active Substance: RABEPRAZOLE SODIUM
     Indication: Hyperchlorhydria
     Dosage: 1.0 DOSAGE FORM (1 DOSAGE FORM, 1 IN 1 DAY)
     Route: 048
     Dates: start: 20230317, end: 20230412
  2. FLUCONAZOLE [Suspect]
     Active Substance: FLUCONAZOLE
     Dosage: 100 MILLILITRE(S))
     Route: 042
     Dates: start: 20230317, end: 20230327
  3. ESOMEPRAZOLE [Concomitant]
     Active Substance: ESOMEPRAZOLE
     Dosage: 80.0 MILLIGRAM(S) (80 MILLIGRAM(S), 1 IN 1 DAY)
     Route: 042
     Dates: start: 20230314, end: 20230317

REACTIONS (1)
  - Drug-induced liver injury [Unknown]

NARRATIVE: CASE EVENT DATE: 20230317
